FAERS Safety Report 6468634-0 (Version None)
Quarter: 2009Q4

REPORT INFORMATION
  Report Type: 
  Country: None (occurrence: None)
  Receive Date: 20091203
  Receipt Date: 20091202
  Transmission Date: 20100525
  Serious: Yes (Other)
  Sender: FDA-Public Use
  Company Number: US-WYE-H11560109

PATIENT
  Sex: Female
  Weight: 77.18 kg

DRUGS (8)
  1. PREMPRO [Suspect]
     Indication: HORMONE REPLACEMENT THERAPY
     Dosage: 0.45MG/1.5MG DOSE, FREQUENCY UNKNOWN
     Route: 048
     Dates: start: 20070101, end: 20091012
  2. METOPROLOL TARTRATE [Concomitant]
     Dosage: TAKEN DAILY, DOSE UNSPECIFIED
     Route: 048
  3. LOVAZA [Concomitant]
     Dosage: TAKEN DAILY, DOSE UNSPECIFIED
     Route: 048
  4. IRON [Concomitant]
     Dosage: TAKEN DAILY, DOSE UNSPECIFIED
     Route: 048
  5. CALCIUM [Concomitant]
     Dosage: 1000 MG EVERY
     Route: 048
  6. MULTI-VITAMINS [Concomitant]
     Dosage: TAKEN DAILY, DOSE UNSPECIFIED
     Route: 048
  7. PRAVACHOL [Concomitant]
     Dosage: TAKEN DAILY, DOSE UNSPECIFIED
     Route: 048
  8. ASPIRIN [Concomitant]
     Dosage: TAKEN DAILY, DOSE UNSPECIFIED
     Route: 048

REACTIONS (3)
  - CARDIAC PACEMAKER INSERTION [None]
  - MYOCARDIAL INFARCTION [None]
  - WEIGHT DECREASED [None]
